FAERS Safety Report 6192872-8 (Version None)
Quarter: 2009Q2

REPORT INFORMATION
  Report Type: 
  Country: None (occurrence: None)
  Receive Date: 20090518
  Receipt Date: 20090511
  Transmission Date: 20091009
  Serious: Yes (Life-Threatening, Hospitalization)
  Sender: FDA-Public Use
  Company Number: JP-ASTRAZENECA-2009AP02019

PATIENT
  Age: 28996 Day
  Sex: Female
  Weight: 48 kg

DRUGS (12)
  1. SEROQUEL [Suspect]
     Indication: INSOMNIA
     Route: 048
     Dates: start: 20081212, end: 20090110
  2. GARENOXACIN [Suspect]
     Indication: INSOMNIA
     Route: 048
     Dates: start: 20090106, end: 20090110
  3. ARICEPT [Suspect]
     Indication: DEMENTIA ALZHEIMER'S TYPE
     Route: 048
     Dates: start: 20070119, end: 20090110
  4. CEROCRAL [Concomitant]
     Route: 048
     Dates: start: 20030125, end: 20090110
  5. MAGNESIUM OXIDE [Concomitant]
     Route: 048
     Dates: start: 20031121, end: 20090110
  6. LIORESAL [Concomitant]
     Route: 048
     Dates: start: 20080523, end: 20090110
  7. ZANTAC [Concomitant]
     Route: 048
     Dates: start: 20030307, end: 20090110
  8. POLLAKISU [Concomitant]
     Route: 065
     Dates: start: 20081212, end: 20090110
  9. MYSLEE [Concomitant]
     Route: 065
     Dates: start: 20081212, end: 20090110
  10. SILECE [Concomitant]
     Route: 065
     Dates: start: 20081212, end: 20090110
  11. ROCEPHIN [Concomitant]
     Route: 065
     Dates: start: 20081225, end: 20090110
  12. MEIACT [Concomitant]
     Route: 065
     Dates: start: 20081230, end: 20090106

REACTIONS (2)
  - ARRHYTHMIA [None]
  - INFECTION [None]
